FAERS Safety Report 14980141 (Version 1)
Quarter: 2018Q2

REPORT INFORMATION
  Report Type: Spontaneous
  Country: US (occurrence: US)
  Receive Date: 20180606
  Receipt Date: 20180606
  Transmission Date: 20180711
  Serious: Yes (Hospitalization, Other)
  Sender: FDA-Public Use
  Company Number: US-MYLANLABS-2018M1037367

PATIENT
  Sex: Female

DRUGS (15)
  1. THALIDOMIDE [Suspect]
     Active Substance: THALIDOMIDE
     Indication: CHOROID PLEXUS CARCINOMA
     Dosage: 4 MG/KG, QD
     Route: 048
     Dates: start: 201309, end: 201609
  2. VORINOSTAT [Suspect]
     Active Substance: VORINOSTAT
     Indication: CHOROID PLEXUS CARCINOMA
     Dosage: 200 MG/M2/DOSE
     Route: 048
     Dates: start: 201309, end: 201609
  3. METHOTREXATE. [Suspect]
     Active Substance: METHOTREXATE
     Indication: CHOROID PLEXUS CARCINOMA
     Dosage: 2 CYCLES OF 8 GM/M2
     Route: 065
     Dates: start: 201212, end: 201301
  4. TEMODAR [Suspect]
     Active Substance: TEMOZOLOMIDE
     Indication: CHOROID PLEXUS CARCINOMA
     Dosage: 3 CYCLES OF 140 MG/M2 X 5 DAYS
     Route: 065
     Dates: start: 201209, end: 201211
  5. SUNITINIB [Suspect]
     Active Substance: SUNITINIB
     Indication: CHOROID PLEXUS CARCINOMA
     Dosage: 15 MG/M2/DOSE
     Route: 048
     Dates: start: 201309, end: 201609
  6. METHOTREXATE. [Suspect]
     Active Substance: METHOTREXATE
     Dosage: 1 CYCLE OF 8 GM/M2
     Route: 065
     Dates: start: 201308, end: 201309
  7. VINCRISTINE [Suspect]
     Active Substance: VINCRISTINE
     Indication: CHOROID PLEXUS CARCINOMA
     Dosage: 1.5 MG/M2, 2 CYCLES
     Route: 065
     Dates: start: 201212, end: 201301
  8. ETOPOSIDE. [Suspect]
     Active Substance: ETOPOSIDE
     Indication: CHOROID PLEXUS CARCINOMA
     Dosage: 2 CYCLES OF 100 MG/M2 X 5 DAYS
     Route: 065
     Dates: start: 201303, end: 201307
  9. BEVACIZUMAB. [Suspect]
     Active Substance: BEVACIZUMAB
     Indication: CHOROID PLEXUS CARCINOMA
     Dosage: 10 MG/KG, 3 CYCLES
     Route: 065
     Dates: start: 201209, end: 201211
  10. IRINOTECAN [Suspect]
     Active Substance: IRINOTECAN
     Indication: CHOROID PLEXUS CARCINOMA
     Dosage: 125 MG/M2, 3 CYCLES
     Route: 065
     Dates: start: 201209, end: 201211
  11. IFOSFAMIDE. [Suspect]
     Active Substance: IFOSFAMIDE
     Indication: CHOROID PLEXUS CARCINOMA
     Dosage: 1800 MG/M 2 TIMES 5 DAYS
     Route: 065
     Dates: start: 201303, end: 201307
  12. CARBOPLATIN. [Suspect]
     Active Substance: CARBOPLATIN
     Indication: CHOROID PLEXUS CARCINOMA
     Dosage: 2 CYCLES OF 560 MG/M2
     Route: 065
     Dates: start: 201303, end: 201307
  13. VINCRISTINE [Suspect]
     Active Substance: VINCRISTINE
     Dosage: 1.5 MG/M2, 1 CYCLE
     Route: 065
     Dates: start: 201308, end: 201309
  14. VINCRISTINE [Suspect]
     Active Substance: VINCRISTINE
     Dosage: 1.5 MG/M2, 2 CYCLES
     Route: 065
     Dates: start: 201303, end: 201307
  15. SIROLIMUS. [Suspect]
     Active Substance: SIROLIMUS
     Indication: CHOROID PLEXUS CARCINOMA
     Dosage: 1 MG/M2, QD
     Route: 048
     Dates: start: 201309, end: 201609

REACTIONS (6)
  - Abscess [Unknown]
  - Neutropenia [Unknown]
  - Thrombocytopenia [Unknown]
  - Decreased appetite [Unknown]
  - Nausea [Unknown]
  - Vomiting [Unknown]
